FAERS Safety Report 7357042-6 (Version None)
Quarter: 2011Q1

REPORT INFORMATION
  Report Type: 
  Country: None (occurrence: None)
  Receive Date: 20110308
  Receipt Date: 20110225
  Transmission Date: 20110831
  Serious: Yes (Hospitalization)
  Sender: FDA-Public Use
  Company Number: 2010JP006695

PATIENT
  Age: 51 Year
  Sex: Female
  Weight: 40 kg

DRUGS (12)
  1. FOLIC ACID [Concomitant]
  2. PREDNISOLONE [Concomitant]
  3. ROHYPNOL (FLUNITRAZEPAM) [Concomitant]
  4. ACTONEL [Concomitant]
  5. PREDNISOLONE [Concomitant]
  6. CELECOXIB [Concomitant]
  7. METHOTREXATE [Concomitant]
  8. DIOVAN [Concomitant]
  9. PROGRAF [Suspect]
     Indication: STILL'S DISEASE ADULT ONSET
     Dosage: 3 MG, /D, ORAL; 2 MG  /D, ORAL, ORAL
     Route: 048
     Dates: start: 20100127, end: 20100710
  10. PROGRAF [Suspect]
     Indication: STILL'S DISEASE ADULT ONSET
     Dosage: 3 MG, /D, ORAL; 2 MG  /D, ORAL, ORAL
     Route: 048
     Dates: end: 20100126
  11. PROGRAF [Suspect]
     Indication: STILL'S DISEASE ADULT ONSET
     Dosage: 3 MG, /D, ORAL; 2 MG  /D, ORAL, ORAL
     Route: 048
     Dates: end: 20100826
  12. TAKEPRON (LANSOPRAZOLE) [Concomitant]

REACTIONS (1)
  - COLITIS ISCHAEMIC [None]
